FAERS Safety Report 11103987 (Version 3)
Quarter: 2016Q1

REPORT INFORMATION
  Report Type: Report from Study
  Country: US (occurrence: US)
  Receive Date: 20150511
  Receipt Date: 20160218
  Transmission Date: 20160525
  Serious: Yes (Death, Hospitalization, Other)
  Sender: FDA-Public Use
  Company Number: US-BAYER-2015-036582

PATIENT
  Age: 87 Year
  Sex: Female
  Weight: 53.97 kg

DRUGS (7)
  1. ADEMPAS [Suspect]
     Active Substance: RIOCIGUAT
     Indication: PULMONARY HYPERTENSION
     Dosage: 2 MG, TID (SHIPPED 13-APR-2015)
     Route: 048
  2. ADEMPAS [Suspect]
     Active Substance: RIOCIGUAT
     Indication: PULMONARY HYPERTENSION
     Dosage: 1 MG, TID
     Route: 048
  3. TRACLEER [Concomitant]
     Active Substance: BOSENTAN
  4. ADEMPAS [Suspect]
     Active Substance: RIOCIGUAT
     Indication: PULMONARY HYPERTENSION
     Dosage: UNK
     Dates: start: 20150206
  5. ASPIRIN. [Concomitant]
     Active Substance: ASPIRIN
  6. ADEMPAS [Suspect]
     Active Substance: RIOCIGUAT
     Indication: PULMONARY HYPERTENSION
     Dosage: 1 MG, TID (SHIPPED 06-FEB-2015)
     Route: 048
     Dates: start: 20150207
  7. ADEMPAS [Suspect]
     Active Substance: RIOCIGUAT
     Indication: PULMONARY HYPERTENSION
     Dosage: 1 MG, TID
     Route: 048

REACTIONS (13)
  - Vomiting [Unknown]
  - Intentional product misuse [None]
  - Hospitalisation [None]
  - Urinary retention [None]
  - Constipation [None]
  - Dyspnoea [Unknown]
  - Weight decreased [Unknown]
  - Wheezing [None]
  - Dysuria [None]
  - Nausea [Unknown]
  - Chest discomfort [Unknown]
  - Death [Fatal]
  - Underdose [None]

NARRATIVE: CASE EVENT DATE: 20150424
